FAERS Safety Report 13187039 (Version 1)
Quarter: 2017Q1

REPORT INFORMATION
  Report Type: Report from Study
  Country: US (occurrence: US)
  Receive Date: 20170206
  Receipt Date: 20170206
  Transmission Date: 20170428
  Serious: No
  Sender: FDA-Public Use
  Company Number: PHEH2017US003414

PATIENT
  Age: 30 Year
  Sex: Male
  Weight: 81.63 kg

DRUGS (1)
  1. GILENYA [Suspect]
     Active Substance: FINGOLIMOD HYDROCHLORIDE
     Indication: MULTIPLE SCLEROSIS
     Dosage: 0.5 MG, QD
     Route: 048
     Dates: start: 20170128

REACTIONS (6)
  - Irritability [Unknown]
  - Restlessness [Unknown]
  - Disturbance in attention [Unknown]
  - Vision blurred [Unknown]
  - Dizziness [Unknown]
  - Feeling drunk [Unknown]

NARRATIVE: CASE EVENT DATE: 20170128
